FAERS Safety Report 23751969 (Version 1)
Quarter: 2024Q2

REPORT INFORMATION
  Report Type: Spontaneous
  Country: CA (occurrence: CA)
  Receive Date: 20240417
  Receipt Date: 20240417
  Transmission Date: 20240716
  Serious: Yes (Other)
  Sender: FDA-Public Use
  Company Number: CA-TEVA-VS-3177284

PATIENT
  Sex: Male

DRUGS (1)
  1. PREDNISONE [Suspect]
     Active Substance: PREDNISONE
     Indication: Scleritis
     Route: 065
     Dates: start: 2022, end: 2023

REACTIONS (2)
  - Scleritis [Unknown]
  - Drug ineffective [Unknown]
